FAERS Safety Report 11848349 (Version 1)
Quarter: 2015Q4

REPORT INFORMATION
  Report Type: Spontaneous
  Country: US (occurrence: US)
  Receive Date: 20151217
  Receipt Date: 20151217
  Transmission Date: 20160305
  Serious: Yes (Death, Hospitalization)
  Sender: FDA-Public Use
  Company Number: US-JNJFOC-20151204169

PATIENT
  Age: 25 Year
  Sex: Female

DRUGS (2)
  1. LOPERAMIDE [Suspect]
     Active Substance: LOPERAMIDE
     Indication: DRUG WITHDRAWAL SYNDROME
     Route: 065
  2. LOPERAMIDE [Suspect]
     Active Substance: LOPERAMIDE
     Route: 065

REACTIONS (10)
  - Dizziness [None]
  - Nystagmus [None]
  - Toxicity to various agents [Fatal]
  - Hypotension [Fatal]
  - Ejection fraction decreased [None]
  - Nausea [None]
  - Accidental death [None]
  - Drug abuse [Fatal]
  - Vomiting [None]
  - Drug screen positive [None]
